FAERS Safety Report 9479562 (Version 1)
Quarter: 2013Q3

REPORT INFORMATION
  Report Type: Spontaneous
  Country: NO (occurrence: NO)
  Receive Date: 20130827
  Receipt Date: 20130827
  Transmission Date: 20140515
  Serious: Yes (Other)
  Sender: FDA-Public Use
  Company Number: NO-UCBSA-095941

PATIENT
  Age: 0 None
  Sex: Female
  Weight: .9 kg

DRUGS (1)
  1. KEPPRA [Suspect]
     Indication: EPILEPSY
     Dosage: DOSE : 1500 MG
     Route: 064
     Dates: start: 2013, end: 2013

REACTIONS (5)
  - Premature baby [Unknown]
  - Foetal growth restriction [Unknown]
  - Foetal disorder [Unknown]
  - Low birth weight baby [Unknown]
  - Foetal exposure during pregnancy [Recovered/Resolved]
